FAERS Safety Report 6993306-3 (Version None)
Quarter: 2010Q3

REPORT INFORMATION
  Report Type: 
  Country: None (occurrence: None)
  Receive Date: 20100917
  Receipt Date: 20100310
  Transmission Date: 20110219
  Serious: No
  Sender: FDA-Public Use
  Company Number: US-ASTRAZENECA-2010SE10592

PATIENT
  Age: 56 Year
  Sex: Female
  Weight: 66.7 kg

DRUGS (6)
  1. SEROQUEL [Suspect]
     Indication: BIPOLAR II DISORDER
     Route: 048
     Dates: start: 20091201
  2. SEROQUEL [Suspect]
     Route: 048
     Dates: start: 20091201
  3. OMEPRAZOLE [Concomitant]
     Indication: GASTROOESOPHAGEAL REFLUX DISEASE
  4. AMLODIPINE [Concomitant]
     Indication: HYPERTENSION
  5. WELLBURIN [Concomitant]
  6. LEVOTHYROXINE SODIUM [Concomitant]

REACTIONS (2)
  - DRY MOUTH [None]
  - TONGUE DISORDER [None]
